FAERS Safety Report 19525864 (Version 1)
Quarter: 2021Q3

REPORT INFORMATION
  Report Type: Spontaneous
  Country: US (occurrence: US)
  Receive Date: 20210713
  Receipt Date: 20210713
  Transmission Date: 20211014
  Serious: Yes (Death)
  Sender: FDA-Public Use
  Company Number: None

PATIENT
  Age: 69 Year
  Sex: Male

DRUGS (1)
  1. NIVESTYM [Suspect]
     Active Substance: FILGRASTIM-AAFI
     Indication: PROSTATE CANCER
     Dosage: ?          OTHER FREQUENCY:SEE EVENT; DAILY FOR 7 DAYS STARTING 24?48 HOURS AFTER CHEMO EVERY 21 DAYS?
     Route: 058
     Dates: start: 202104

REACTIONS (1)
  - Neoplasm malignant [None]

NARRATIVE: CASE EVENT DATE: 20210607
